FAERS Safety Report 24409455 (Version 1)
Quarter: 2024Q4

REPORT INFORMATION
  Report Type: Report from Study
  Country: CA (occurrence: CA)
  Receive Date: 20241008
  Receipt Date: 20241008
  Transmission Date: 20250114
  Serious: Yes (Other)
  Sender: SANDOZ
  Company Number: CA-SANDOZ-SDZ2023CA045572

PATIENT
  Sex: Female

DRUGS (1)
  1. HYRIMOZ [Suspect]
     Active Substance: ADALIMUMAB-ADAZ
     Indication: Crohn^s disease
     Dosage: 40 MG, QW,  PATIENT^S LAST DOSE WAS RECEIVED ON 30-SEP-2024.
     Route: 058
     Dates: start: 20220519

REACTIONS (7)
  - Rheumatoid arthritis [Unknown]
  - Crohn^s disease [Unknown]
  - General physical health deterioration [Unknown]
  - Wound [Unknown]
  - Skin tightness [Unknown]
  - Stress [Unknown]
  - Aphthous ulcer [Unknown]
